FAERS Safety Report 4477457-3 (Version None)
Quarter: 2004Q4

REPORT INFORMATION
  Report Type: 
  Country: None (occurrence: None)
  Receive Date: 20041012
  Receipt Date: 20040928
  Transmission Date: 20050328
  Serious: Yes (Other)
  Sender: FDA-Public Use
  Company Number: USA_70407_2004

PATIENT
  Age: 41 Year
  Sex: Female
  Weight: 80.2867 kg

DRUGS (4)
  1. AZATHIOPRINE [Suspect]
     Indication: CROHN'S DISEASE
     Dosage: DF
  2. SULFASALAZINE [Suspect]
     Indication: CROHN'S DISEASE
  3. INFLIXIMAB [Suspect]
     Indication: CROHN'S DISEASE
     Dosage: 5 MG/KG PRN IV
     Route: 042
     Dates: start: 20020930
  4. ANTI-DIARRHEAL MEDICATION [Suspect]
     Indication: DIARRHOEA

REACTIONS (2)
  - POLYP COLORECTAL [None]
  - RECTAL ADENOMA [None]
